FAERS Safety Report 5524263-4 (Version None)
Quarter: 2007Q4

REPORT INFORMATION
  Report Type: 
  Country: None (occurrence: None)
  Receive Date: 20071121
  Receipt Date: 20071109
  Transmission Date: 20080405
  Serious: Yes (Other)
  Sender: FDA-Public Use
  Company Number: US-PFIZER INC-2007095050

PATIENT
  Sex: Male
  Weight: 64.4 kg

DRUGS (3)
  1. DILANTIN [Suspect]
     Indication: EPILEPSY
  2. DILANTIN [Suspect]
  3. XANAX [Concomitant]

REACTIONS (3)
  - ANTICONVULSANT DRUG LEVEL DECREASED [None]
  - CARDIAC OPERATION [None]
  - DRUG LEVEL FLUCTUATING [None]
